FAERS Safety Report 13655362 (Version 1)
Quarter: 2017Q2

REPORT INFORMATION
  Report Type: Report from Study
  Country: VE (occurrence: VE)
  Receive Date: 20170615
  Receipt Date: 20170615
  Transmission Date: 20170830
  Serious: Yes (Other)
  Sender: FDA-Public Use
  Company Number: PHHY2017VE080050

PATIENT
  Sex: Male

DRUGS (5)
  1. TASIGNA [Suspect]
     Active Substance: NILOTINIB
     Indication: CHRONIC MYELOID LEUKAEMIA
     Dosage: 400 MG, QD (DAILY)
     Route: 048
     Dates: start: 201601
  2. TASIGNA [Suspect]
     Active Substance: NILOTINIB
     Dosage: 200 MG, QD
     Route: 048
     Dates: start: 20160801, end: 201704
  3. ALURON [Concomitant]
     Indication: BLOOD URIC ACID ABNORMAL
  4. ALURON [Concomitant]
     Indication: PERIPHERAL VASCULAR DISORDER
     Dosage: 500 MG, UNK
     Route: 065
  5. LOSARTAN. [Concomitant]
     Active Substance: LOSARTAN
     Indication: BLOOD PRESSURE INCREASED
     Dosage: 50 MG, UNK
     Route: 065

REACTIONS (7)
  - Dysuria [Unknown]
  - White blood cell count decreased [Unknown]
  - Red blood cell count decreased [Unknown]
  - Platelet disorder [Unknown]
  - Haemoglobin increased [Unknown]
  - White blood cell disorder [Unknown]
  - Haematocrit increased [Unknown]
